FAERS Safety Report 6093391-X (Version None)
Quarter: 2009Q1

REPORT INFORMATION
  Report Type: 
  Country: None (occurrence: None)
  Receive Date: 20090226
  Receipt Date: 20090216
  Transmission Date: 20090719
  Serious: Yes (Other)
  Sender: FDA-Public Use
  Company Number: DE-ROCHE-614854

PATIENT
  Age: 42 Year
  Sex: Male

DRUGS (12)
  1. CEFTRIAXONE [Suspect]
     Indication: WHIPPLE'S DISEASE
     Route: 065
  2. SULFAMETHOXAZOLE AND TRIMETHOPRIM [Suspect]
     Indication: WHIPPLE'S DISEASE
     Route: 065
  3. SULFAMETHOXAZOLE AND TRIMETHOPRIM [Suspect]
     Route: 065
  4. DOXYCYCLINE [Suspect]
     Indication: WHIPPLE'S DISEASE
     Route: 065
  5. HYDROXYCHLOROQUINE SULFATE [Suspect]
     Indication: WHIPPLE'S DISEASE
     Route: 065
  6. STREPTOMYCIN [Suspect]
     Indication: WHIPPLE'S DISEASE
     Route: 065
  7. PREDNISONE [Suspect]
     Indication: WHIPPLE'S DISEASE
     Route: 065
  8. PREDNISONE [Suspect]
     Dosage: DOSE REDUCED
     Route: 065
     Dates: start: 20070301
  9. PREDNISONE [Suspect]
     Dosage: DOSE INCREASED
     Route: 065
     Dates: start: 20070801
  10. PREDNISONE [Suspect]
     Route: 065
  11. ACYCLOVIR SODIUM [Suspect]
     Indication: HERPES DERMATITIS
     Dosage: EVERY 4 HOURS.
     Route: 065
  12. AZATHIOPRINE [Suspect]
     Indication: HERPES DERMATITIS
     Route: 065

REACTIONS (6)
  - HERPES DERMATITIS [None]
  - INTERSTITIAL GRANULOMATOUS DERMATITIS [None]
  - LYMPHOEDEMA [None]
  - MASS [None]
  - NODULE [None]
  - PAPILLOMA VIRAL INFECTION [None]
